FAERS Safety Report 25517565 (Version 2)
Quarter: 2025Q3

REPORT INFORMATION
  Report Type: Spontaneous
  Country: JP (occurrence: JP)
  Receive Date: 20250704
  Receipt Date: 20250810
  Transmission Date: 20251021
  Serious: Yes (Other)
  Sender: ALEXION PHARMACEUTICALS
  Company Number: JP-ASTRAZENECA-240094378_063010_P_1

PATIENT
  Age: 57 Year
  Sex: Female

DRUGS (4)
  1. DAPAGLIFLOZIN [Suspect]
     Active Substance: DAPAGLIFLOZIN
     Indication: Chronic kidney disease
     Dosage: 10 MILLIGRAM, QD
     Dates: start: 20240408, end: 20240701
  2. ROSUVASTATIN [Concomitant]
     Active Substance: ROSUVASTATIN
  3. OLMESARTAN [Concomitant]
     Active Substance: OLMESARTAN
  4. ALLOPURINOL [Concomitant]
     Active Substance: ALLOPURINOL

REACTIONS (1)
  - Renal impairment [Recovered/Resolved]

NARRATIVE: CASE EVENT DATE: 20240603
